FAERS Safety Report 9369581 (Version 1)
Quarter: 2013Q2

REPORT INFORMATION
  Report Type: Spontaneous
  Country: US (occurrence: US)
  Receive Date: 20130626
  Receipt Date: 20130626
  Transmission Date: 20140414
  Serious: No
  Sender: FDA-Public Use
  Company Number: US-MYLANLABS-2012S1014001

PATIENT
  Age: 73 Year
  Sex: Male
  Weight: 74.84 kg

DRUGS (7)
  1. PERFOROMIST (FORMOTEROL FUMARATE) INHALATION SOLUTION [Suspect]
     Indication: DYSPNOEA
     Route: 055
  2. PERFOROMIST (FORMOTEROL FUMARATE) INHALATION SOLUTION [Suspect]
     Indication: OFF LABEL USE
     Route: 055
  3. APRISO [Concomitant]
  4. MERCAPTOPURINE [Concomitant]
  5. LANOXIN [Concomitant]
  6. WARFARIN [Concomitant]
  7. ATENOLOL [Concomitant]

REACTIONS (3)
  - Drug effect decreased [Not Recovered/Not Resolved]
  - Dyspnoea [Not Recovered/Not Resolved]
  - Dry mouth [Not Recovered/Not Resolved]
